FAERS Safety Report 16115806 (Version 1)
Quarter: 2019Q1

REPORT INFORMATION
  Report Type: Spontaneous
  Country: GB (occurrence: GB)
  Receive Date: 20190326
  Receipt Date: 20190326
  Transmission Date: 20190418
  Serious: Yes (Disabling, Other)
  Sender: FDA-Public Use
  Company Number: GB-TEVA-2019-GB-1027526

PATIENT
  Age: 60 Year
  Sex: Female
  Weight: 68.94 kg

DRUGS (5)
  1. TEVA UK LETROZOLE [Suspect]
     Active Substance: LETROZOLE
     Dosage: 2.5 MILLIGRAM DAILY; IN THE EVENING.
     Route: 048
     Dates: start: 20190202, end: 20190225
  2. ANHYDROUS LEVOTHYROXINE SODIUM [Concomitant]
     Dosage: IN THE MORNING.
  3. STEXEROL-D3 [Concomitant]
     Dosage: IN THE MORNING
  4. QVAR [Concomitant]
     Active Substance: BECLOMETHASONE DIPROPIONATE
     Dosage: IN THE EVENING.
  5. INDAPAMIDE. [Concomitant]
     Active Substance: INDAPAMIDE
     Dosage: IN THE MORNING

REACTIONS (3)
  - Arthralgia [Not Recovered/Not Resolved]
  - Product substitution issue [Unknown]
  - Hot flush [Unknown]

NARRATIVE: CASE EVENT DATE: 20190204
